FAERS Safety Report 9863030 (Version 1)
Quarter: 2014Q1

REPORT INFORMATION
  Report Type: Report from Study
  Country: BR (occurrence: BR)
  Receive Date: 20140203
  Receipt Date: 20140203
  Transmission Date: 20141002
  Serious: Yes (Other)
  Sender: FDA-Public Use
  Company Number: PHHY2014BR010699

PATIENT
  Sex: Male
  Weight: 63 kg

DRUGS (3)
  1. SANDOSTATIN LAR [Suspect]
     Indication: ACROMEGALY
     Dosage: 1 DF (AMPULE), EVERY YEAR
  2. CALCIUM [Concomitant]
     Dosage: UNK UKN, UNK
  3. PURAN T4 [Concomitant]
     Dosage: UNK UKN, UNK
     Dates: start: 2011

REACTIONS (3)
  - Multiple endocrine neoplasia Type 1 [Unknown]
  - Neoplasm [Unknown]
  - Parkinson^s disease [Unknown]
